FAERS Safety Report 7485026-6 (Version None)
Quarter: 2011Q2

REPORT INFORMATION
  Report Type: 
  Country: None (occurrence: None)
  Receive Date: 20110517
  Receipt Date: 20110511
  Transmission Date: 20111010
  Serious: Yes (Other)
  Sender: FDA-Public Use
  Company Number: US-SANOFI-AVENTIS-2011SA029665

PATIENT
  Age: 59 Year
  Sex: Male
  Weight: 131.8 kg

DRUGS (7)
  1. LISINOPRIL [Concomitant]
  2. PEPCID [Concomitant]
  3. ALL OTHER THERAPEUTIC PRODUCTS [Concomitant]
  4. METOPROLOL SUCCINATE [Concomitant]
  5. PLAVIX [Suspect]
     Route: 048
     Dates: start: 20090101
  6. GLUCOPHAGE [Concomitant]
  7. ASPIRIN [Concomitant]

REACTIONS (2)
  - CORONARY ARTERY OCCLUSION [None]
  - EPISTAXIS [None]
